FAERS Safety Report 9351309 (Version 1)
Quarter: 2013Q2

REPORT INFORMATION
  Report Type: Spontaneous
  Country: IT (occurrence: IT)
  Receive Date: 20130617
  Receipt Date: 20130617
  Transmission Date: 20140414
  Serious: Yes (Hospitalization)
  Sender: FDA-Public Use
  Company Number: PHHY2013IT060618

PATIENT
  Age: 61 Year
  Sex: Male

DRUGS (5)
  1. AMOXICILLIN+CLAVULANATE [Suspect]
     Indication: ABSCESS
     Dosage: 1 G ONCE/SINGLE
     Route: 048
     Dates: start: 20130504, end: 20130504
  2. KARVEZIDE [Concomitant]
     Indication: HYPERTENSION
  3. CARDIOASPIRIN [Concomitant]
     Dosage: 100 MG
  4. AMLODIPINE [Concomitant]
     Indication: HYPERTENSION
  5. METFORMIN [Concomitant]
     Indication: DIABETES MELLITUS

REACTIONS (3)
  - Syncope [Recovered/Resolved]
  - Erythema [Recovered/Resolved]
  - Pruritus [Recovered/Resolved]
